FAERS Safety Report 10171071 (Version 1)
Quarter: 2014Q2

REPORT INFORMATION
  Report Type: Spontaneous
  Country: GB (occurrence: GB)
  Receive Date: 20140514
  Receipt Date: 20140514
  Transmission Date: 20141212
  Serious: Yes (Hospitalization, Other)
  Sender: FDA-Public Use
  Company Number: GB-JNJFOC-20140503422

PATIENT
  Age: 33 Year
  Sex: Male

DRUGS (2)
  1. USTEKINUMAB [Suspect]
     Indication: PSORIASIS
     Route: 058
     Dates: start: 20131004, end: 20131104
  2. BENZYLPENICILLIN SODIUM [Concomitant]
     Indication: ASCITES
     Route: 065
     Dates: start: 20140415, end: 20140417

REACTIONS (1)
  - Ascites [Unknown]
